FAERS Safety Report 5133590-4 (Version None)
Quarter: 2006Q4

REPORT INFORMATION
  Report Type: 
  Country: None (occurrence: None)
  Receive Date: 20061018
  Receipt Date: 20061003
  Transmission Date: 20070319
  Serious: Yes (Other)
  Sender: FDA-Public Use
  Company Number: 2006US002192

PATIENT
  Age: 75 Year
  Sex: Male

DRUGS (3)
  1. AMBISOME [Suspect]
     Indication: ASPERGILLOSIS
     Dosage: 125 MG, UID/QD, IV DRIP
     Route: 041
     Dates: start: 20060914, end: 20060914
  2. FUNGUARD (MICAFUNGIN SODIUM) [Concomitant]
  3. VFEND [Concomitant]

REACTIONS (3)
  - CONVULSION [None]
  - CYANOSIS [None]
  - LOSS OF CONSCIOUSNESS [None]
